FAERS Safety Report 5241640-X (Version None)
Quarter: 2007Q1

REPORT INFORMATION
  Report Type: 
  Country: None (occurrence: None)
  Receive Date: 20070215
  Receipt Date: 20070215
  Transmission Date: 20070707
  Serious: Yes (Disabling, Other)
  Sender: FDA-Public Use
  Company Number: None

PATIENT
  Sex: Female
  Weight: 27.9 kg

DRUGS (3)
  1. CYTARABINE 2G BEDFORD [Suspect]
     Indication: NEPHROBLASTOMA
     Dosage: 3000MG X 2.5 IV
     Route: 042
     Dates: start: 20070212, end: 20070213
  2. CYTARABINE 2G BEDFORD [Suspect]
  3. CYTARABINE 1G BEDFORD [Suspect]

REACTIONS (2)
  - INFUSION RELATED REACTION [None]
  - PYREXIA [None]
